FAERS Safety Report 10013495 (Version 1)
Quarter: 2014Q1

REPORT INFORMATION
  Report Type: Spontaneous
  Country: BR (occurrence: BR)
  Receive Date: 20140314
  Receipt Date: 20140314
  Transmission Date: 20141002
  Serious: Yes (Death, Hospitalization)
  Sender: FDA-Public Use
  Company Number: BR-ASTRAZENECA-2014SE17521

PATIENT
  Sex: Male

DRUGS (1)
  1. SEROQUEL XRO [Suspect]
     Indication: INSOMNIA
     Route: 048

REACTIONS (3)
  - Cardiac arrest [Fatal]
  - Adverse event [Not Recovered/Not Resolved]
  - Off label use [Not Recovered/Not Resolved]
